FAERS Safety Report 4686001-7 (Version None)
Quarter: 2005Q2

REPORT INFORMATION
  Report Type: 
  Country: None (occurrence: None)
  Receive Date: 20050606
  Receipt Date: 20050519
  Transmission Date: 20051028
  Serious: Yes (Disabling)
  Sender: FDA-Public Use
  Company Number: 8010672

PATIENT
  Age: 41 Year
  Sex: Male
  Weight: 86.36 kg

DRUGS (9)
  1. KEPPRA [Suspect]
     Indication: CONVULSION
     Dosage: 500 MG 2/D PO
     Route: 048
     Dates: start: 20050321, end: 20050301
  2. KEPPRA [Suspect]
     Indication: PROPHYLAXIS
     Dosage: 500 MG 2/D PO
     Route: 048
     Dates: start: 20050321, end: 20050301
  3. KEPPRA [Suspect]
     Indication: CONVULSION
     Dosage: 750 MG 2/D PO
     Route: 048
     Dates: start: 20050301, end: 20050414
  4. KEPPRA [Suspect]
     Indication: PROPHYLAXIS
     Dosage: 750 MG 2/D PO
     Route: 048
     Dates: start: 20050301, end: 20050414
  5. KEPPRA [Suspect]
     Indication: CONVULSION
     Dosage: 500 MG 2/D PO
     Route: 048
     Dates: start: 20050414, end: 20050517
  6. KEPPRA [Suspect]
     Indication: PROPHYLAXIS
     Dosage: 500 MG 2/D PO
     Route: 048
     Dates: start: 20050414, end: 20050517
  7. KEPPRA [Suspect]
     Indication: CONVULSION
     Dosage: 250 MG 2/D PO
     Route: 048
     Dates: start: 20050518
  8. KEPPRA [Suspect]
     Indication: PROPHYLAXIS
     Dosage: 250 MG 2/D PO
     Route: 048
     Dates: start: 20050518
  9. ASPIRIN [Concomitant]

REACTIONS (8)
  - APHASIA [None]
  - CONVULSION [None]
  - DIPLOPIA [None]
  - DIZZINESS [None]
  - IMPAIRED DRIVING ABILITY [None]
  - IMPAIRED WORK ABILITY [None]
  - PERONEAL NERVE PALSY [None]
  - STARING [None]
